FAERS Safety Report 7783327-5 (Version None)
Quarter: 2011Q3

REPORT INFORMATION
  Report Type: 
  Country: None (occurrence: None)
  Receive Date: 20110928
  Receipt Date: 20110921
  Transmission Date: 20111222
  Serious: Yes (Other)
  Sender: FDA-Public Use
  Company Number: US-BAYER-2011-090291

PATIENT
  Age: 35 Year
  Sex: Female

DRUGS (3)
  1. BEYAZ [Suspect]
     Indication: CONTRACEPTION
     Dosage: UNK
     Route: 048
     Dates: start: 20110101, end: 20110601
  2. SAFYRAL [Suspect]
     Indication: METRORRHAGIA
     Dosage: UNK
     Dates: start: 20110601, end: 20110701
  3. BEYAZ [Suspect]
     Indication: AFFECTIVE DISORDER
     Dosage: UNK
     Dates: start: 20110801, end: 20110901

REACTIONS (4)
  - ABORTION SPONTANEOUS [None]
  - PAIN IN EXTREMITY [None]
  - PREGNANCY ON ORAL CONTRACEPTIVE [None]
  - METRORRHAGIA [None]
